FAERS Safety Report 8878983 (Version 2)
Quarter: 2013Q1

REPORT INFORMATION
  Report Type: Report from Study
  Country: JP (occurrence: JP)
  Receive Date: 20121026
  Receipt Date: 20130125
  Transmission Date: 20140127
  Serious: Yes (Hospitalization)
  Sender: FDA-Public Use
  Company Number: JP-AMGEN-JPNCT2012068529

PATIENT
  Age: 78 Year
  Sex: Male
  Weight: 72 kg

DRUGS (16)
  1. DARBEPOETIN ALFA [Suspect]
     Indication: NEPHROGENIC ANAEMIA
     Dosage: 30 MUG, QD
     Route: 040
     Dates: start: 20110510
  2. DARBEPOETIN ALFA [Suspect]
     Dosage: 40 MUG, QD
     Route: 040
     Dates: start: 20110517
  3. DARBEPOETIN ALFA [Suspect]
     Dosage: 50 MUG, QD
     Route: 040
     Dates: start: 20110525
  4. DARBEPOETIN ALFA [Suspect]
     Dosage: 60 MUG, QD
     Route: 040
     Dates: start: 20110610
  5. DARBEPOETIN ALFA [Suspect]
     Dosage: 120 MUG, Q4WK
     Route: 040
     Dates: start: 20110624, end: 20110819
  6. DARBEPOETIN ALFA [Suspect]
     Dosage: 120 MUG, QD
     Route: 040
     Dates: start: 20110909
  7. DARBEPOETIN ALFA [Suspect]
     Dosage: 60 MUG, Q4WK
     Route: 040
     Dates: start: 20111007, end: 20111104
  8. DARBEPOETIN ALFA [Suspect]
     Dosage: 100 MUG, QD
     Route: 040
     Dates: start: 20111202, end: 20111202
  9. DARBEPOETIN ALFA [Suspect]
     Dosage: 120 MUG, Q4WK
     Route: 040
     Dates: start: 20111216, end: 20120113
  10. DARBEPOETIN ALFA [Suspect]
     Dosage: 120 MUG, Q2WK
     Route: 040
     Dates: start: 20120224, end: 20120323
  11. DARBEPOETIN ALFA [Suspect]
     Dosage: 180 MUG, Q4WK
     Route: 040
     Dates: start: 20120406
  12. UNSPECIFIED INGREDIENT [Suspect]
     Route: 048
     Dates: start: 20111007, end: 20111125
  13. ADALAT CR [Concomitant]
     Route: 048
  14. NESINA [Concomitant]
     Indication: DIABETIC NEPHROPATHY
     Dosage: 6.25 MG, QD
     Route: 048
  15. LIPITOR [Concomitant]
     Dosage: 10 MG, QD
     Route: 048
  16. FEBURIC [Concomitant]
     Dosage: UNK
     Route: 048

REACTIONS (1)
  - Cardiac failure [Recovered/Resolved]
